FAERS Safety Report 10222887 (Version 1)
Quarter: 2014Q2

REPORT INFORMATION
  Report Type: Spontaneous
  Country: US (occurrence: US)
  Receive Date: 20140607
  Receipt Date: 20140607
  Transmission Date: 20141212
  Serious: No
  Sender: FDA-Public Use
  Company Number: US-009507513-1406USA003321

PATIENT
  Age: 27 Year
  Sex: Female
  Weight: 72.56 kg

DRUGS (1)
  1. NUVARING [Suspect]
     Indication: CONTRACEPTION
     Dosage: DOSE/FREQUENCY: 3 WEEKS ON 1 WEEK RING FREE BREAK
     Route: 067
     Dates: start: 2010

REACTIONS (2)
  - Haemorrhage [Unknown]
  - Device expulsion [Unknown]
